FAERS Safety Report 18072826 (Version 1)
Quarter: 2020Q3

REPORT INFORMATION
  Report Type: Spontaneous
  Country: US (occurrence: US)
  Receive Date: 20200727
  Receipt Date: 20200727
  Transmission Date: 20201103
  Serious: Yes (Disabling)
  Sender: FDA-Public Use
  Company Number: None

PATIENT
  Age: 34 Year
  Sex: Male
  Weight: 47.25 kg

DRUGS (2)
  1. FLONASE/NASACORT [Concomitant]
  2. SINGULAIR [Suspect]
     Active Substance: MONTELUKAST SODIUM
     Indication: MULTIPLE ALLERGIES
     Dates: start: 20190901, end: 20200727

REACTIONS (4)
  - Irritability [None]
  - Anxiety [None]
  - Impaired work ability [None]
  - Blood pressure abnormal [None]

NARRATIVE: CASE EVENT DATE: 20191101
